FAERS Safety Report 4591585-3 (Version None)
Quarter: 2005Q1

REPORT INFORMATION
  Report Type: 
  Country: None (occurrence: None)
  Receive Date: 20050223
  Receipt Date: 20050223
  Transmission Date: 20050727
  Serious: Yes (Hospitalization)
  Sender: FDA-Public Use
  Company Number: None

PATIENT
  Age: 12 Year
  Sex: Male
  Weight: 65 kg

DRUGS (8)
  1. CLOFARABINE [Suspect]
     Indication: ACUTE LYMPHOCYTIC LEUKAEMIA RECURRENT
     Dosage: 85 MG   IQD   INTRAVENOU
     Route: 042
     Dates: start: 20050203, end: 20050206
  2. TPN [Concomitant]
  3. MONTELUKAST [Concomitant]
  4. FLUCONAZOLE [Concomitant]
  5. DAPSONE [Concomitant]
  6. SARGRAMOSTIM [Concomitant]
  7. VANCOMYCIN [Concomitant]
  8. PIPRACILLIN/TAZOBACTAM [Concomitant]

REACTIONS (2)
  - CHOLELITHIASIS [None]
  - HEPATOTOXICITY [None]
